FAERS Safety Report 23470892 (Version 1)
Quarter: 2024Q1

REPORT INFORMATION
  Report Type: Spontaneous
  Country: US (occurrence: None)
  Receive Date: 20240202
  Receipt Date: 20240202
  Transmission Date: 20240410
  Serious: Yes (Other)
  Sender: FDA-Public Use
  Company Number: None

PATIENT
  Age: 23 Year
  Sex: Male
  Weight: 81 kg

DRUGS (1)
  1. ASENAPINE [Suspect]
     Active Substance: ASENAPINE
     Indication: Schizoaffective disorder bipolar type
     Dosage: OTHER ROUTE : SUBLINGUAL;?
     Route: 050
     Dates: start: 20230502, end: 20230624

REACTIONS (4)
  - Agitation [None]
  - Psychotic disorder [None]
  - Aggression [None]
  - Therapy change [None]

NARRATIVE: CASE EVENT DATE: 20230625
